FAERS Safety Report 14803698 (Version 1)
Quarter: 2018Q2

REPORT INFORMATION
  Report Type: Spontaneous
  Country: US (occurrence: US)
  Receive Date: 20180425
  Receipt Date: 20180425
  Transmission Date: 20180711
  Serious: Yes (Hospitalization)
  Sender: FDA-Public Use
  Company Number: US-BEH-2018089918

PATIENT
  Age: 55 Year
  Sex: Female
  Weight: 61.22 kg

DRUGS (25)
  1. SODIUM CHLORIDE. [Concomitant]
     Active Substance: SODIUM CHLORIDE
  2. EPINEPHRINE. [Concomitant]
     Active Substance: EPINEPHRINE
  3. AMOXICILLIN. [Concomitant]
     Active Substance: AMOXICILLIN
  4. PROGESTERONE. [Concomitant]
     Active Substance: PROGESTERONE
  5. CLARITIN [Concomitant]
     Active Substance: LORATADINE
  6. FLUTICASONE. [Concomitant]
     Active Substance: FLUTICASONE
  7. VITAMIN D3 [Concomitant]
     Active Substance: CHOLECALCIFEROL
  8. VITAMIN K2                         /00357701/ [Concomitant]
  9. SPIRIVA [Concomitant]
     Active Substance: TIOTROPIUM BROMIDE MONOHYDRATE
  10. DIPHENHYDRAMINE. [Concomitant]
     Active Substance: DIPHENHYDRAMINE
  11. DIOVAN [Concomitant]
     Active Substance: VALSARTAN
  12. SINGULAIR [Concomitant]
     Active Substance: MONTELUKAST SODIUM
  13. ALBUTEROL SULFATE. [Concomitant]
     Active Substance: ALBUTEROL SULFATE
  14. PREDNISONE. [Concomitant]
     Active Substance: PREDNISONE
  15. FLORASTOR [Concomitant]
     Active Substance: SACCHAROMYCES CEREVISIAE
  16. PROAIR HFA [Concomitant]
     Active Substance: ALBUTEROL SULFATE
  17. ADVAIR HFA [Concomitant]
     Active Substance: FLUTICASONE PROPIONATE\SALMETEROL XINAFOATE
  18. NAPROXEN. [Concomitant]
     Active Substance: NAPROXEN
  19. ZEMAIRA [Suspect]
     Active Substance: .ALPHA.1-PROTEINASE INHIBITOR HUMAN
     Dosage: UNK
     Route: 042
  20. PRENATAL                           /00231801/ [Concomitant]
     Active Substance: VITAMINS
  21. EFFEXOR [Concomitant]
     Active Substance: VENLAFAXINE HYDROCHLORIDE
  22. ZYRTEC [Concomitant]
     Active Substance: CETIRIZINE HYDROCHLORIDE
  23. ZEMAIRA [Suspect]
     Active Substance: .ALPHA.1-PROTEINASE INHIBITOR HUMAN
     Indication: ALPHA-1 ANTI-TRYPSIN DEFICIENCY
     Dosage: 8000 MG, QOW
     Route: 042
     Dates: start: 20110502
  24. MELATONIN [Concomitant]
     Active Substance: MELATONIN
  25. OXYGEN. [Concomitant]
     Active Substance: OXYGEN

REACTIONS (2)
  - Catheterisation cardiac [Recovered/Resolved]
  - Post procedural haematoma [Recovered/Resolved]

NARRATIVE: CASE EVENT DATE: 201804
